FAERS Safety Report 11529259 (Version 4)
Quarter: 2015Q4

REPORT INFORMATION
  Report Type: Report from Study
  Country: ES (occurrence: ES)
  Receive Date: 20150921
  Receipt Date: 20151022
  Transmission Date: 20160304
  Serious: Yes (Hospitalization, Other)
  Sender: FDA-Public Use
  Company Number: ES-JNJFOC-20150909868

PATIENT
  Age: 80 Year
  Sex: Male

DRUGS (13)
  1. CANAGLIFLOZIN [Suspect]
     Active Substance: CANAGLIFLOZIN
     Route: 048
  2. CANAGLIFLOZIN [Suspect]
     Active Substance: CANAGLIFLOZIN
     Indication: TYPE 2 DIABETES MELLITUS
     Route: 048
     Dates: start: 20141113, end: 20150911
  3. ESOMEPRAZOLE [Concomitant]
     Active Substance: ESOMEPRAZOLE
  4. IRON SUPPLEMENT [Concomitant]
     Active Substance: IRON
  5. CALCIFEDIOL [Concomitant]
     Active Substance: CALCIFEDIOL
     Route: 048
  6. ACFOL [Concomitant]
     Active Substance: FOLIC ACID
  7. SIMVASTATIN. [Concomitant]
     Active Substance: SIMVASTATIN
  8. ALDACTONE [Concomitant]
     Active Substance: SPIRONOLACTONE
  9. SEGURIL [Concomitant]
     Active Substance: FUROSEMIDE
  10. PRANDIN [Concomitant]
     Active Substance: REPAGLINIDE
  11. ASPIRIN. [Concomitant]
     Active Substance: ASPIRIN
     Route: 065
  12. TRADJENTA [Concomitant]
     Active Substance: LINAGLIPTIN
  13. SINTROM [Concomitant]
     Active Substance: ACENOCOUMAROL

REACTIONS (1)
  - Adenocarcinoma gastric [Recovering/Resolving]

NARRATIVE: CASE EVENT DATE: 20150911
